FAERS Safety Report 5145947-6 (Version None)
Quarter: 2006Q4

REPORT INFORMATION
  Report Type: 
  Country: None (occurrence: None)
  Receive Date: 20061108
  Receipt Date: 20061030
  Transmission Date: 20070319
  Serious: Yes (Other)
  Sender: FDA-Public Use
  Company Number: IL-PURDUE-USA_2006_0025542

PATIENT
  Age: 36 Year
  Sex: Male

DRUGS (1)
  1. MORPHINE SULFATE [Suspect]
     Indication: DRUG USE FOR UNKNOWN INDICATION
     Route: 048

REACTIONS (14)
  - ABNORMAL BEHAVIOUR [None]
  - AMNESIA [None]
  - AUTONOMIC NERVOUS SYSTEM IMBALANCE [None]
  - DRUG ABUSER [None]
  - IMPAIRED SELF-CARE [None]
  - INCONTINENCE [None]
  - LEUKOENCEPHALOPATHY [None]
  - MUSCLE SPASTICITY [None]
  - MYOCLONUS [None]
  - NUCLEAR MAGNETIC RESONANCE IMAGING BRAIN ABNORMAL [None]
  - OVERDOSE [None]
  - QUADRIPARESIS [None]
  - REFLEXES ABNORMAL [None]
  - STUPOR [None]
